FAERS Safety Report 11393885 (Version 2)
Quarter: 2015Q3

REPORT INFORMATION
  Report Type: Spontaneous
  Country: NO (occurrence: NO)
  Receive Date: 20150819
  Receipt Date: 20150930
  Transmission Date: 20151125
  Serious: Yes (Hospitalization, Other)
  Sender: FDA-Public Use
  Company Number: NO-AMGEN-NORSP2015082626

PATIENT
  Age: 85 Year
  Sex: Female
  Weight: 55 kg

DRUGS (12)
  1. CALCIGRAN FORTE [Concomitant]
     Dosage: 1000 MG, QD
     Route: 048
  2. VENTOLINE                          /00139501/ [Concomitant]
     Active Substance: ALBUTEROL
     Dosage: 1 ML, AS NECESSARY
  3. PROLIA [Suspect]
     Active Substance: DENOSUMAB
     Indication: OSTEOPOROSIS POSTMENOPAUSAL
     Dosage: 60 MG, Q6MO
     Route: 058
     Dates: start: 20141215
  4. OXYNORM [Concomitant]
     Active Substance: OXYCODONE HYDROCHLORIDE
     Dosage: 5 MG, UNK
  5. SOBRIL [Concomitant]
     Active Substance: OXAZEPAM
     Dosage: 10 MG, AS NECESSARY
     Route: 048
  6. SPIRIVA [Concomitant]
     Active Substance: TIOTROPIUM BROMIDE MONOHYDRATE
     Dosage: UNK (IN THE MORNING)
  7. PREDNISOLONE. [Concomitant]
     Active Substance: PREDNISOLONE
     Indication: POLYMYALGIA RHEUMATICA
     Dosage: UNK UNK, QID
  8. LEVAXIN [Concomitant]
     Active Substance: LEVOTHYROXINE SODIUM
     Dosage: UNK UNK, QD (EXCEPT TUESDAY AND FRIDAY)
     Route: 048
  9. LAXOBERAL [Concomitant]
     Active Substance: SODIUM PICOSULFATE
     Dosage: 5 DROPS IN THE EVENING
  10. PANODIL [Concomitant]
     Active Substance: ACETAMINOPHEN
     Dosage: UNK UNK, QID
     Route: 048
  11. SOMAC [Concomitant]
     Active Substance: PANTOPRAZOLE SODIUM
     Dosage: UNK (MORNING)
     Route: 048
  12. LAKTULOSE [Concomitant]
     Dosage: 15ML IN MOMING, MID-DAY AND EVENING

REACTIONS (1)
  - Colon cancer [Recovered/Resolved]

NARRATIVE: CASE EVENT DATE: 20150407
